FAERS Safety Report 16877600 (Version 1)
Quarter: 2019Q4

REPORT INFORMATION
  Report Type: Spontaneous
  Country: US (occurrence: US)
  Receive Date: 20191002
  Receipt Date: 20191002
  Transmission Date: 20200122
  Serious: Yes (Other)
  Sender: FDA-Public Use
  Company Number: None

PATIENT
  Age: 34 Year
  Sex: Female
  Weight: 58.5 kg

DRUGS (6)
  1. VITAMINS(VITAMIN B, C, E, B12, MULTIVITAMIN + CALCIUM) ONCE IN A WHILE [Concomitant]
  2. ZANTAC 150 MAXIMUM STRENGTH [Suspect]
     Active Substance: RANITIDINE HYDROCHLORIDE
     Indication: ERYTHEMA
     Dosage: ?          QUANTITY:1 TABLET(S);OTHER FREQUENCY:AS NEEDED 2-3 WEEK;?
     Route: 048
     Dates: start: 20160101, end: 20190929
  3. ALLERGY SHOTS MONTHLY [Concomitant]
  4. SINGULAIR ONCE IN A WHILE [Concomitant]
  5. KIRKLAND SIGNATURE ACID REDUCER [Suspect]
     Active Substance: RANITIDINE HYDROCHLORIDE
  6. ZANTAC 150 MAXIMUM STRENGTH [Suspect]
     Active Substance: RANITIDINE HYDROCHLORIDE
     Indication: DYSPEPSIA
     Dosage: ?          QUANTITY:1 TABLET(S);OTHER FREQUENCY:AS NEEDED 2-3 WEEK;?
     Route: 048
     Dates: start: 20160101, end: 20190929

REACTIONS (2)
  - Abdominal pain [None]
  - Hepatic neoplasm [None]

NARRATIVE: CASE EVENT DATE: 20180201
